FAERS Safety Report 16107803 (Version 1)
Quarter: 2019Q1

REPORT INFORMATION
  Report Type: Spontaneous
  Country: US (occurrence: US)
  Receive Date: 20190322
  Receipt Date: 20190322
  Transmission Date: 20190418
  Serious: No
  Sender: FDA-Public Use
  Company Number: US-ASTRAZENECA-2019SE33261

PATIENT
  Sex: Female
  Weight: 79.8 kg

DRUGS (3)
  1. SYMBICORT [Suspect]
     Active Substance: BUDESONIDE\FORMOTEROL FUMARATE DIHYDRATE
     Indication: ASTHMA
     Dosage: TWO PUFFS ONCE A DAY AND DAY
     Route: 055
  2. VENTOLIN [Concomitant]
     Active Substance: ALBUTEROL SULFATE
     Indication: INHALATION THERAPY
     Dosage: AS REQUIRED
     Route: 055
  3. SYMBICORT [Suspect]
     Active Substance: BUDESONIDE\FORMOTEROL FUMARATE DIHYDRATE
     Indication: ASTHMA
     Dosage: MORE THAN TWO PUFFS A DAY
     Route: 055

REACTIONS (6)
  - Asthma [Unknown]
  - Product prescribing error [Unknown]
  - Device issue [Unknown]
  - Extra dose administered [Unknown]
  - Intentional product misuse [Unknown]
  - Visual impairment [Not Recovered/Not Resolved]
